FAERS Safety Report 16133080 (Version 1)
Quarter: 2019Q2

REPORT INFORMATION
  Report Type: Spontaneous
  Country: US (occurrence: US)
  Receive Date: 20190328
  Receipt Date: 20190328
  Transmission Date: 20190711
  Serious: Yes (Hospitalization)
  Sender: FDA-Public Use
  Company Number: None

PATIENT
  Age: 50 Year
  Sex: Male
  Weight: 132.8 kg

DRUGS (3)
  1. TRULICITY 0.75 MG Q7 DAYS [Concomitant]
     Dates: start: 20111020, end: 20190216
  2. INVOKANA [Suspect]
     Active Substance: CANAGLIFLOZIN
     Indication: TYPE 2 DIABETES MELLITUS
     Route: 048
     Dates: start: 20150428, end: 20190216
  3. PIOGLITAZONE-METFORMIN 15/850 MG 04/28/2018BID [Concomitant]
     Dates: start: 20140517, end: 20190216

REACTIONS (8)
  - Asthenia [None]
  - Vomiting [None]
  - Lethargy [None]
  - Muscle spasms [None]
  - Chills [None]
  - Dysarthria [None]
  - Euglycaemic diabetic ketoacidosis [None]
  - Hyporesponsive to stimuli [None]

NARRATIVE: CASE EVENT DATE: 20190216
